FAERS Safety Report 17021452 (Version 3)
Quarter: 2020Q1

REPORT INFORMATION
  Report Type: Spontaneous
  Country: US (occurrence: US)
  Receive Date: 20191112
  Receipt Date: 20200129
  Transmission Date: 20200409
  Serious: Yes (Hospitalization)
  Sender: FDA-Public Use
  Company Number: US-PFIZER INC-2019485523

PATIENT
  Age: 70 Year
  Sex: Female
  Weight: 60.91 kg

DRUGS (11)
  1. XELJANZ [Suspect]
     Active Substance: TOFACITINIB CITRATE
     Indication: RHEUMATOID ARTHRITIS
     Dosage: 5 MG, TWICE A DAY
     Route: 048
     Dates: start: 201910, end: 2019
  2. BROVANA [Concomitant]
     Active Substance: ARFORMOTEROL TARTRATE
     Dosage: UNK
  3. B COMPLEX [VITAMIN B COMPLEX] [Concomitant]
     Dosage: UNK
  4. VENTOLIN [GUAIFENESIN;SALBUTAMOL SULFATE] [Concomitant]
     Active Substance: ALBUTEROL\GUAIFENESIN
     Dosage: UNK
  5. XELJANZ [Suspect]
     Active Substance: TOFACITINIB CITRATE
     Dosage: 10 MG, 2X/DAY
     Dates: start: 20191024
  6. PREMARIN [Concomitant]
     Active Substance: ESTROGENS, CONJUGATED
     Dosage: 0.625
     Route: 067
  7. HYOSCYAMINE SULFATE ELIXIR [Concomitant]
     Dosage: UNK
  8. OLOPATADINE. [Concomitant]
     Active Substance: OLOPATADINE
     Dosage: UNK
  9. ALBUTEROL SULFATE. [Concomitant]
     Active Substance: ALBUTEROL SULFATE
     Dosage: 2.5 MG, UNK
  10. ACETAMINOPHEN. [Concomitant]
     Active Substance: ACETAMINOPHEN
     Dosage: 500 MG, UNK
  11. NASALCROM [Concomitant]
     Active Substance: CROMOLYN SODIUM
     Dosage: UNK

REACTIONS (3)
  - Chest pain [Recovered/Resolved]
  - Off label use [Unknown]
  - Heart rate irregular [Recovered/Resolved]

NARRATIVE: CASE EVENT DATE: 2019
